FAERS Safety Report 7635436-9 (Version None)
Quarter: 2011Q3

REPORT INFORMATION
  Report Type: 
  Country: None (occurrence: None)
  Receive Date: 20110718
  Receipt Date: 20110701
  Transmission Date: 20111222
  Serious: Yes (Hospitalization)
  Sender: FDA-Public Use
  Company Number: 2011AT000254

PATIENT
  Sex: Male

DRUGS (5)
  1. CILOSTAZOL [Suspect]
     Indication: ARTERIAL OCCLUSIVE DISEASE
     Dosage: PO
     Route: 048
     Dates: start: 20110610, end: 20110620
  2. ALPROSTADIL [Suspect]
     Indication: ARTERIAL OCCLUSIVE DISEASE
     Dosage: 20, IVDRP
     Route: 041
     Dates: start: 20110610, end: 20110627
  3. ASPIRIN [Suspect]
     Indication: ARTERIAL OCCLUSIVE DISEASE
     Dosage: PO
     Route: 048
     Dates: start: 20110621, end: 20110623
  4. SARPOGRELATE HYDROCHLORIDE (SARPOGRELATE HYDROCHLORIDE) [Suspect]
     Indication: ARTERIAL OCCLUSIVE DISEASE
     Dosage: PO
     Route: 048
     Dates: start: 20110621, end: 20110623
  5. CLOPIDOGREL [Suspect]
     Indication: ARTERIAL OCCLUSIVE DISEASE
     Dosage: PO
     Route: 048
     Dates: start: 20110621, end: 20110623

REACTIONS (3)
  - INTERSTITIAL LUNG DISEASE [None]
  - DYSPNOEA [None]
  - C-REACTIVE PROTEIN INCREASED [None]
